FAERS Safety Report 21859781 (Version 2)
Quarter: 2023Q1

REPORT INFORMATION
  Report Type: Report from Study
  Country: US (occurrence: US)
  Receive Date: 20230113
  Receipt Date: 20230325
  Transmission Date: 20230418
  Serious: No
  Sender: FDA-Public Use
  Company Number: US-ABBVIE-4269125

PATIENT
  Age: 60 Year
  Sex: Male
  Weight: 102 kg

DRUGS (1)
  1. CREON [Suspect]
     Active Substance: PANCRELIPASE AMYLASE\PANCRELIPASE LIPASE\PANCRELIPASE PROTEASE
     Indication: Pancreatic failure
     Dosage: TIME INTERVAL: 0.33333333 DAYS: FREQUENCY TEXT: 3 TIMES A DAILY WITH MEALS, FORM STRENGTH: 36000 ...
     Route: 048
     Dates: start: 2021

REACTIONS (1)
  - Pain [Recovered/Resolved]

NARRATIVE: CASE EVENT DATE: 20221201
